FAERS Safety Report 20676474 (Version 1)
Quarter: 2022Q2

REPORT INFORMATION
  Report Type: Report from Study
  Country: IT (occurrence: IT)
  Receive Date: 20220405
  Receipt Date: 20220405
  Transmission Date: 20220721
  Serious: Yes (Other)
  Sender: FDA-Public Use
  Company Number: None

PATIENT
  Age: 83 Year
  Sex: Female
  Weight: 0 kg

DRUGS (2)
  1. ELIQUIS [Suspect]
     Active Substance: APIXABAN
     Indication: Cardiac failure
     Route: 048
     Dates: start: 20191011
  2. ENTRESTO [Concomitant]
     Active Substance: SACUBITRIL\VALSARTAN
     Indication: Mitral valve incompetence
     Dosage: 1 DOSAGE FORM
     Route: 048
     Dates: start: 20191010

REACTIONS (6)
  - Swelling [Recovering/Resolving]
  - Haemarthrosis [Recovering/Resolving]
  - Blood thromboplastin increased [Recovering/Resolving]
  - Prothrombin time prolonged [Recovering/Resolving]
  - Joint swelling [Recovering/Resolving]
  - Intentional product use issue [Unknown]

NARRATIVE: CASE EVENT DATE: 20210630
